FAERS Safety Report 18799957 (Version 1)
Quarter: 2021Q1

REPORT INFORMATION
  Report Type: Spontaneous
  Country: US (occurrence: US)
  Receive Date: 20210128
  Receipt Date: 20210128
  Transmission Date: 20210419
  Serious: Yes (Life-Threatening, Hospitalization)
  Sender: FDA-Public Use
  Company Number: US-MYLANLABS-2021M1005493

PATIENT
  Age: 40 Year
  Sex: Male

DRUGS (6)
  1. FAMOTIDINE. [Suspect]
     Active Substance: FAMOTIDINE
     Indication: ANGIOEDEMA
     Dosage: 20 MILLIGRAM
     Route: 042
  2. DIPHENHYDRAMINE. [Suspect]
     Active Substance: DIPHENHYDRAMINE
     Indication: ANGIOEDEMA
     Dosage: 50 MILLIGRAM
     Route: 042
  3. METHYLPREDNISOLONE. [Suspect]
     Active Substance: METHYLPREDNISOLONE
     Indication: ANGIOEDEMA
     Dosage: 125 MILLIGRAM
     Route: 042
  4. LISINOPRIL. [Suspect]
     Active Substance: LISINOPRIL
     Indication: PRODUCT USED FOR UNKNOWN INDICATION
     Dosage: 20 MILLIGRAM, QD
     Route: 065
  5. HYDROCHLOROTHIAZIDE. [Concomitant]
     Active Substance: HYDROCHLOROTHIAZIDE
     Indication: PRODUCT USED FOR UNKNOWN INDICATION
     Dosage: 25 MILLIGRAM, QD
     Route: 065
  6. EPINEPHRINE. [Suspect]
     Active Substance: EPINEPHRINE
     Indication: ANGIOEDEMA
     Dosage: 0.3 MILLIGRAM
     Route: 030

REACTIONS (2)
  - Drug ineffective [Unknown]
  - Angioedema [Recovering/Resolving]
